FAERS Safety Report 14800095 (Version 2)
Quarter: 2018Q2

REPORT INFORMATION
  Report Type: Report from Study
  Country: JP (occurrence: JP)
  Receive Date: 20180424
  Receipt Date: 20180604
  Transmission Date: 20180711
  Serious: Yes (Other)
  Sender: FDA-Public Use
  Company Number: JP-UCBSA-2018017404

PATIENT
  Age: 35 Year
  Sex: Female

DRUGS (7)
  1. FYCOMPA [Concomitant]
     Active Substance: PERAMPANEL
     Dosage: 4 MG DAILY DOSE
     Route: 048
     Dates: start: 20170920, end: 20170927
  2. LACOSAMIDE. [Suspect]
     Active Substance: LACOSAMIDE
     Indication: SIMPLE PARTIAL SEIZURES
     Dosage: 50 MG, ONCE DAILY (QD)
     Route: 048
     Dates: start: 20171018, end: 20171114
  3. FYCOMPA [Concomitant]
     Active Substance: PERAMPANEL
     Dosage: 2 MG DAILY DOSE
     Route: 048
     Dates: start: 20170928, end: 20171017
  4. E KEPPRA [Concomitant]
     Active Substance: LEVETIRACETAM
     Indication: SIMPLE PARTIAL SEIZURES
     Route: 048
     Dates: end: 20170823
  5. ALEVIATIN [Concomitant]
     Active Substance: PHENYTOIN SODIUM
     Indication: SIMPLE PARTIAL SEIZURES
     Dosage: 225 MG DAILY DOSE
     Route: 048
  6. E KEPPRA [Concomitant]
     Active Substance: LEVETIRACETAM
     Dosage: 750 MG DAILY DOSE
     Route: 048
     Dates: start: 20170824
  7. FYCOMPA [Concomitant]
     Active Substance: PERAMPANEL
     Indication: SIMPLE PARTIAL SEIZURES
     Dosage: 2 MG
     Route: 048
     Dates: end: 20170719

REACTIONS (2)
  - Inappropriate schedule of drug administration [Unknown]
  - Epilepsy [Recovered/Resolved]

NARRATIVE: CASE EVENT DATE: 20171018
